FAERS Safety Report 11564938 (Version 1)
Quarter: 2015Q3

REPORT INFORMATION
  Report Type: Spontaneous
  Country: US (occurrence: US)
  Receive Date: 20150916
  Receipt Date: 20150916
  Transmission Date: 20151125
  Serious: No
  Sender: FDA-Public Use
  Company Number: US-ELI_LILLY_AND_COMPANY-US200904001125

PATIENT
  Age: 63 Year
  Sex: Female

DRUGS (7)
  1. ACTONEL [Concomitant]
     Active Substance: RISEDRONATE SODIUM
     Dates: start: 2006
  2. FORTEO [Suspect]
     Active Substance: TERIPARATIDE
     Indication: BONE DISORDER
     Dosage: 20 UG, DAILY (1/D)
     Dates: start: 200806
  3. CALCIUM [Concomitant]
     Active Substance: CALCIUM
     Dates: end: 200810
  4. FORTEO [Interacting]
     Active Substance: TERIPARATIDE
     Dosage: UNK, UNK
  5. CALCIUM [Concomitant]
     Active Substance: CALCIUM
     Dates: start: 2008
  6. VITAMIN D3 [Concomitant]
     Active Substance: CHOLECALCIFEROL
  7. FORTEO [Interacting]
     Active Substance: TERIPARATIDE
     Dosage: UNK, UNK

REACTIONS (12)
  - Insomnia [Not Recovered/Not Resolved]
  - Blood cholesterol increased [Unknown]
  - Drug ineffective [Not Recovered/Not Resolved]
  - Discomfort [Not Recovered/Not Resolved]
  - Bone pain [Not Recovered/Not Resolved]
  - Coccydynia [Not Recovered/Not Resolved]
  - Irritability [Not Recovered/Not Resolved]
  - Bone pain [Recovered/Resolved]
  - Bone density decreased [Not Recovered/Not Resolved]
  - Drug interaction [Unknown]
  - Blood calcium increased [Recovered/Resolved]
  - Bone disorder [Not Recovered/Not Resolved]

NARRATIVE: CASE EVENT DATE: 200810
